APPROVED DRUG PRODUCT: ILOSONE
Active Ingredient: ERYTHROMYCIN ESTOLATE
Strength: EQ 125MG BASE/5ML
Dosage Form/Route: FOR SUSPENSION;ORAL
Application: A061893 | Product #001
Applicant: DISTA PRODUCTS CO DIV ELI LILLY AND CO
Approved: Approved Prior to Jan 1, 1982 | RLD: No | RS: No | Type: DISCN